FAERS Safety Report 25605501 (Version 1)
Quarter: 2025Q3

REPORT INFORMATION
  Report Type: Report from Study
  Country: US (occurrence: US)
  Receive Date: 20250725
  Receipt Date: 20250725
  Transmission Date: 20251020
  Serious: Yes (Other)
  Sender: MERCK SHARP & DOHME LLC
  Company Number: US-009507513-2287921

PATIENT
  Sex: Male
  Weight: 98.883 kg

DRUGS (23)
  1. WINREVAIR [Suspect]
     Active Substance: SOTATERCEPT-CSRK
     Indication: Pulmonary arterial hypertension
     Dosage: INJECT 1.4MLS SUBCUTANEOUSLY Q3W
     Route: 058
     Dates: start: 20250421
  2. WINREVAIR [Suspect]
     Active Substance: SOTATERCEPT-CSRK
  3. WINREVAIR [Suspect]
     Active Substance: SOTATERCEPT-CSRK
  4. WINREVAIR [Suspect]
     Active Substance: SOTATERCEPT-CSRK
  5. WINREVAIR [Suspect]
     Active Substance: SOTATERCEPT-CSRK
  6. WINREVAIR [Suspect]
     Active Substance: SOTATERCEPT-CSRK
  7. WINREVAIR [Suspect]
     Active Substance: SOTATERCEPT-CSRK
  8. WINREVAIR [Suspect]
     Active Substance: SOTATERCEPT-CSRK
  9. UPTRAVI [Concomitant]
     Active Substance: SELEXIPAG
  10. RITUXAN [Concomitant]
     Active Substance: RITUXIMAB
  11. IMODIUM [Concomitant]
     Active Substance: LOPERAMIDE HYDROCHLORIDE
  12. ESCITALOPRAM OXALATE [Concomitant]
     Active Substance: ESCITALOPRAM OXALATE
  13. LOSARTAN POTASSIUM [Concomitant]
     Active Substance: LOSARTAN POTASSIUM
  14. TADALAFIL [Concomitant]
     Active Substance: TADALAFIL
  15. ATORVASTATIN CALCIUM [Concomitant]
     Active Substance: ATORVASTATIN CALCIUM
  16. METOPROLOL SUCCINATE [Concomitant]
     Active Substance: METOPROLOL SUCCINATE
  17. BUDESONIDE DR [Concomitant]
  18. OPSUMIT [Concomitant]
     Active Substance: MACITENTAN
  19. ASPIRIN [Concomitant]
     Active Substance: ASPIRIN
  20. LATANOPROST [Concomitant]
     Active Substance: LATANOPROST
  21. OXYGEN [Concomitant]
     Active Substance: OXYGEN
  22. OMEPRAZOLE [Concomitant]
     Active Substance: OMEPRAZOLE
  23. BUSPIRONE HCL [Concomitant]
     Active Substance: BUSPIRONE HYDROCHLORIDE

REACTIONS (4)
  - Abdominal pain upper [Recovered/Resolved]
  - Device breakage [Unknown]
  - Haematochezia [Recovered/Resolved]
  - Diarrhoea [Recovered/Resolved]

NARRATIVE: CASE EVENT DATE: 20250101
